FAERS Safety Report 4918801-X (Version None)
Quarter: 2006Q1

REPORT INFORMATION
  Report Type: 
  Country: None (occurrence: None)
  Receive Date: 20060222
  Receipt Date: 20060209
  Transmission Date: 20060701
  Serious: Yes (Hospitalization)
  Sender: FDA-Public Use
  Company Number: BR-SOLVAY-00206000483

PATIENT
  Age: 35 Year
  Sex: Female

DRUGS (6)
  1. UTROGESTAN [Suspect]
     Indication: IN VITRO FERTILISATION
     Dosage: DAILY DOSE: 600 MILLIGRAM(S)
     Route: 065
  2. PROFASI HP [Suspect]
     Indication: IN VITRO FERTILISATION
     Dosage: DAILY DOSE: 10000 INTERNATIONAL UNIT(S)
     Route: 030
  3. GONAL-F [Suspect]
     Indication: IN VITRO FERTILISATION
     Dosage: DAILY DOSE: 225 INTERNATIONAL UNIT(S)
     Route: 030
  4. GONAL-F [Suspect]
     Dosage: DAILY DOSE: 150 INTERNATIONAL UNIT(S)
     Route: 030
  5. GONAL-F [Suspect]
     Dosage: DAILY DOSE: 75 INTERNATIONAL UNIT(S)
     Route: 030
  6. RELISER [Suspect]
     Indication: IN VITRO FERTILISATION
     Dosage: DAILY DOSE: .5 MILLIGRAM(S)
     Route: 062

REACTIONS (1)
  - OVARIAN TORSION [None]
